FAERS Safety Report 6740758-X (Version None)
Quarter: 2010Q2

REPORT INFORMATION
  Report Type: 
  Country: None (occurrence: None)
  Receive Date: 20100524
  Receipt Date: 20100517
  Transmission Date: 20101027
  Serious: Yes (Hospitalization, Other)
  Sender: FDA-Public Use
  Company Number: 2009-196762-NL

PATIENT
  Age: 25 Year
  Sex: Female
  Weight: 52.1637 kg

DRUGS (2)
  1. NUVARING [Suspect]
     Indication: CONTRACEPTION
     Dosage: VAG
     Route: 067
     Dates: start: 20060201, end: 20070601
  2. ADVIL LIQUI-GELS [Concomitant]

REACTIONS (26)
  - ABDOMINAL PAIN [None]
  - ANTI-THYROID ANTIBODY POSITIVE [None]
  - ANXIETY [None]
  - ARTHRITIS [None]
  - BLOOD HOMOCYSTEINE DECREASED [None]
  - BLOOD THYROID STIMULATING HORMONE INCREASED [None]
  - CHEST PAIN [None]
  - CHILLS [None]
  - CONVULSION [None]
  - DEEP VEIN THROMBOSIS [None]
  - DYSFUNCTIONAL UTERINE BLEEDING [None]
  - GASTRITIS [None]
  - HAEMANGIOMA OF LIVER [None]
  - HYPERCOAGULATION [None]
  - INTERNATIONAL NORMALISED RATIO DECREASED [None]
  - MUSCULOSKELETAL PAIN [None]
  - NEUTROPHIL COUNT INCREASED [None]
  - OCCULT BLOOD POSITIVE [None]
  - OPIATES POSITIVE [None]
  - OSTEOPOROSIS [None]
  - PREGNANCY WITH CONTRACEPTIVE DEVICE [None]
  - PULMONARY EMBOLISM [None]
  - PYREXIA [None]
  - REVERSE TRI-IODOTHYRONINE DECREASED [None]
  - VOMITING [None]
  - WEIGHT INCREASED [None]
